FAERS Safety Report 18182779 (Version 1)
Quarter: 2020Q3

REPORT INFORMATION
  Report Type: Spontaneous
  Country: JP (occurrence: JP)
  Receive Date: 20200821
  Receipt Date: 20200821
  Transmission Date: 20201103
  Serious: Yes (Other)
  Sender: FDA-Public Use
  Company Number: JP-ASTRAZENECA-2020SF02580

PATIENT
  Age: 37 Year
  Sex: Male

DRUGS (5)
  1. CISPLATIN. [Concomitant]
     Active Substance: CISPLATIN
     Indication: LUNG ADENOCARCINOMA STAGE III
     Dosage: 80.0MG/M2 UNKNOWN
     Route: 065
  2. IRINOTECAN [Concomitant]
     Active Substance: IRINOTECAN
     Indication: LUNG ADENOCARCINOMA STAGE III
     Dosage: 60.0MG/M2 UNKNOWN
     Route: 065
  3. DURVALUMAB. [Suspect]
     Active Substance: DURVALUMAB
     Indication: LUNG ADENOCARCINOMA STAGE III
     Dosage: 10.0MG/M2 UNKNOWN
     Route: 042
  4. CISPLATIN. [Concomitant]
     Active Substance: CISPLATIN
     Indication: LUNG ADENOCARCINOMA STAGE III
     Dosage: 60.0MG/M2 UNKNOWN
     Route: 065
  5. VINORELBINE [Concomitant]
     Active Substance: VINORELBINE TARTRATE
     Indication: LUNG ADENOCARCINOMA STAGE III
     Dosage: 20.0MG/M2 UNKNOWN
     Route: 065

REACTIONS (4)
  - Drug resistance [Unknown]
  - Malignant transformation [Unknown]
  - Small cell lung cancer [Unknown]
  - Malignant neoplasm progression [Unknown]
